FAERS Safety Report 5801706-X (Version None)
Quarter: 2008Q3

REPORT INFORMATION
  Report Type: 
  Country: None (occurrence: None)
  Receive Date: 20080707
  Receipt Date: 20080701
  Transmission Date: 20090109
  Serious: Yes (Other)
  Sender: FDA-Public Use
  Company Number: B0527138A

PATIENT
  Age: 69 Year
  Sex: Female

DRUGS (1)
  1. SEREVENT [Suspect]
     Indication: CHRONIC OBSTRUCTIVE PULMONARY DISEASE
     Dosage: 25MCG UNKNOWN
     Route: 055

REACTIONS (1)
  - ASTHMA [None]
